FAERS Safety Report 17514027 (Version 1)
Quarter: 2020Q1

REPORT INFORMATION
  Report Type: Report from Study
  Country: NL (occurrence: NL)
  Receive Date: 20200306
  Receipt Date: 20200306
  Transmission Date: 20200409
  Serious: Yes (Other)
  Sender: FDA-Public Use
  Company Number: NL-SUN PHARMACEUTICAL INDUSTRIES LTD-2020RR-239646

PATIENT
  Age: 62 Year
  Sex: Male

DRUGS (3)
  1. NIVOLUMAB [Suspect]
     Active Substance: NIVOLUMAB
     Indication: GLIOBLASTOMA MULTIFORME
     Dosage: UNK
     Route: 065
  2. TEMOZOLOMIDE. [Suspect]
     Active Substance: TEMOZOLOMIDE
     Dosage: 200 MILLIGRAM/SQ. METER, 6 COURSES, DAYS 1-5 EVERY 4 WEEKS
     Route: 065
  3. TEMOZOLOMIDE. [Suspect]
     Active Substance: TEMOZOLOMIDE
     Indication: GLIOBLASTOMA MULTIFORME
     Dosage: 75 MILLIGRAM/SQ. METER, DAILY
     Route: 065

REACTIONS (2)
  - Disease recurrence [Unknown]
  - Disease progression [Unknown]
